FAERS Safety Report 25547305 (Version 2)
Quarter: 2025Q3

REPORT INFORMATION
  Report Type: Report from Study
  Country: GB (occurrence: GB)
  Receive Date: 20250714
  Receipt Date: 20250806
  Transmission Date: 20251021
  Serious: Yes (Other)
  Sender: SANOFI AVENTIS
  Company Number: GB-SA-2025SA183463

PATIENT
  Age: 44 Year
  Sex: Female

DRUGS (2)
  1. ALEMTUZUMAB [Suspect]
     Active Substance: ALEMTUZUMAB
     Route: 065
     Dates: start: 2017, end: 2022
  2. ALEMTUZUMAB [Suspect]
     Active Substance: ALEMTUZUMAB

REACTIONS (6)
  - Syncope [Unknown]
  - Multiple sclerosis relapse [Unknown]
  - Limb discomfort [Unknown]
  - Skin lesion [Unknown]
  - Fatigue [Unknown]
  - Sensitivity to weather change [Unknown]
